FAERS Safety Report 19564313 (Version 1)
Quarter: 2021Q3

REPORT INFORMATION
  Report Type: Spontaneous
  Country: ES (occurrence: ES)
  Receive Date: 20210714
  Receipt Date: 20210714
  Transmission Date: 20211014
  Serious: Yes (Hospitalization, Other)
  Sender: FDA-Public Use
  Company Number: ES-LUPIN PHARMACEUTICALS INC.-2021-11851

PATIENT
  Age: 43 Year
  Sex: Male

DRUGS (1)
  1. METHYLPREDNISOLONE. [Suspect]
     Active Substance: METHYLPREDNISOLONE
     Indication: OPTIC NEURITIS
     Dosage: 1000 MILLIGRAM, QD
     Route: 042

REACTIONS (7)
  - Condition aggravated [Recovering/Resolving]
  - Vitritis [Recovered/Resolved]
  - Visual impairment [Recovered/Resolved]
  - Retinal detachment [Recovered/Resolved]
  - Vasculitis [Recovered/Resolved]
  - Eye disorder [Recovering/Resolving]
  - Syphilis [Recovering/Resolving]
